FAERS Safety Report 5523258-4 (Version None)
Quarter: 2007Q4

REPORT INFORMATION
  Report Type: 
  Country: None (occurrence: None)
  Receive Date: 20071119
  Receipt Date: 20071119
  Transmission Date: 20080405
  Serious: Yes (Hospitalization)
  Sender: FDA-Public Use
  Company Number: None

PATIENT
  Age: 65 Year
  Sex: Female
  Weight: 57.1532 kg

DRUGS (2)
  1. AVELOX [Suspect]
     Indication: PRODUCTIVE COUGH
     Dosage: 400 MG 1 DAILY PO
     Route: 048
     Dates: start: 20071019, end: 20071028
  2. AVELOX [Suspect]
     Indication: SINUSITIS
     Dosage: 400 MG 1 DAILY PO
     Route: 048
     Dates: start: 20071019, end: 20071028

REACTIONS (3)
  - AMNESIA [None]
  - DEHYDRATION [None]
  - DEPRESSED LEVEL OF CONSCIOUSNESS [None]
